FAERS Safety Report 9148857 (Version 3)
Quarter: 2014Q1

REPORT INFORMATION
  Report Type: Spontaneous
  Country: US (occurrence: US)
  Receive Date: 20130308
  Receipt Date: 20140127
  Transmission Date: 20141002
  Serious: Yes (Hospitalization, Other)
  Sender: FDA-Public Use
  Company Number: US-JNJFOC-20130101578

PATIENT
  Sex: Female
  Weight: 52.16 kg

DRUGS (6)
  1. EXTRA STRENGTH TYLENOL [Suspect]
     Indication: HEADACHE
     Route: 048
     Dates: start: 20101211, end: 20101212
  2. EXTRA STRENGTH TYLENOL [Suspect]
     Indication: PAIN
     Route: 048
     Dates: start: 20101211, end: 20101212
  3. ACETAMINOPHEN [Suspect]
     Indication: MALAISE
     Route: 065
     Dates: start: 20101211
  4. MAXALT [Concomitant]
     Indication: MIGRAINE
     Route: 065
     Dates: start: 1993
  5. ZOFRAN [Concomitant]
     Indication: ABDOMINAL DISCOMFORT
     Route: 065
     Dates: start: 201012
  6. ZOFRAN [Concomitant]
     Indication: VOMITING
     Route: 065
     Dates: start: 201012

REACTIONS (9)
  - Eye haemorrhage [Unknown]
  - Dehydration [Unknown]
  - Influenza [Unknown]
  - Electrolyte imbalance [Unknown]
  - Headache [Unknown]
  - Overdose [Unknown]
  - Renal failure [Unknown]
  - Acute hepatic failure [Unknown]
  - Vomiting [Unknown]
